FAERS Safety Report 6616805-2 (Version None)
Quarter: 2010Q1

REPORT INFORMATION
  Report Type: 
  Country: None (occurrence: None)
  Receive Date: 20100301
  Receipt Date: 20100217
  Transmission Date: 20100710
  Serious: Yes (Other)
  Sender: FDA-Public Use
  Company Number: 515100

PATIENT
  Age: 34 Year
  Sex: Male

DRUGS (8)
  1. BLEOMYCIN SULFATE [Suspect]
     Indication: HODGKIN'S DISEASE
  2. CARBOPLATIN [Suspect]
     Indication: HODGKIN'S DISEASE
  3. DACARBAZINE [Suspect]
     Indication: HODGKIN'S DISEASE
  4. ETOPOSIDE [Suspect]
     Indication: HODGKIN'S DISEASE
  5. (DOXORUBICIN) [Suspect]
     Indication: HODGKIN'S DISEASE
  6. IFOSFAMIDE [Suspect]
     Indication: HODGKIN'S DISEASE
  7. (VINBLASTINE) [Suspect]
     Indication: HODGKIN'S DISEASE
  8. (THERAPEUTIC RADIOPHARMACEUTICALS) [Suspect]
     Indication: HODGKIN'S DISEASE

REACTIONS (2)
  - B PRECURSOR TYPE ACUTE LEUKAEMIA [None]
  - PRECURSOR B-LYMPHOBLASTIC LYMPHOMA [None]
